FAERS Safety Report 23928323 (Version 1)
Quarter: 2024Q2

REPORT INFORMATION
  Report Type: Spontaneous
  Country: US (occurrence: US)
  Receive Date: 20240531
  Receipt Date: 20240531
  Transmission Date: 20240716
  Serious: No
  Sender: FDA-Public Use
  Company Number: US-RADIUS HEALTH INC.-2023US002540

PATIENT
  Age: 63 Year
  Sex: Female

DRUGS (9)
  1. TYMLOS [Suspect]
     Active Substance: ABALOPARATIDE
     Indication: Senile osteoporosis
     Dosage: 40 MICROGRAM, QD 4-5 DAYS
     Route: 058
     Dates: start: 20230504, end: 202305
  2. TYMLOS [Suspect]
     Active Substance: ABALOPARATIDE
     Dosage: 50 MCG QD FOR 3 DAYS
     Route: 058
     Dates: start: 202305, end: 202305
  3. TYMLOS [Suspect]
     Active Substance: ABALOPARATIDE
     Dosage: 60 MCG QD
     Route: 058
     Dates: start: 202305
  4. TYMLOS [Suspect]
     Active Substance: ABALOPARATIDE
     Dosage: 70MCG
     Dates: start: 20230830
  5. PROBIOTICS NOS [Concomitant]
     Active Substance: PROBIOTICS NOS
     Indication: Product used for unknown indication
  6. VITAMINS [Concomitant]
     Active Substance: VITAMINS
     Indication: Product used for unknown indication
  7. VITAMIN B COMPLEX [Concomitant]
     Active Substance: CYANOCOBALAMIN\DEXPANTHENOL\NIACINAMIDE\PYRIDOXINE HYDROCHLORIDE\RIBOFLAVIN 5^-PHOSPHATE SODIUM\THIA
     Indication: Product used for unknown indication
  8. VITAMIN D3 [Concomitant]
     Active Substance: CHOLECALCIFEROL
     Indication: Product used for unknown indication
  9. SYNTHROID [Concomitant]
     Active Substance: LEVOTHYROXINE SODIUM
     Indication: Product used for unknown indication

REACTIONS (6)
  - Condition aggravated [Not Recovered/Not Resolved]
  - Paraesthesia [Not Recovered/Not Resolved]
  - Heart rate increased [Not Recovered/Not Resolved]
  - Palpitations [Not Recovered/Not Resolved]
  - Abdominal pain upper [Not Recovered/Not Resolved]
  - Off label use [Not Recovered/Not Resolved]

NARRATIVE: CASE EVENT DATE: 20230504
